FAERS Safety Report 17075049 (Version 12)
Quarter: 2020Q4

REPORT INFORMATION
  Report Type: Spontaneous
  Country: US (occurrence: US)
  Receive Date: 20191126
  Receipt Date: 20201124
  Transmission Date: 20210113
  Serious: Yes (Hospitalization, Other)
  Sender: FDA-Public Use
  Company Number: US-PFIZER INC-2019492143

PATIENT
  Age: 72 Year
  Sex: Female
  Weight: 46.71 kg

DRUGS (3)
  1. PREMARIN [Suspect]
     Active Substance: ESTROGENS, CONJUGATED
     Indication: VULVOVAGINAL DRYNESS
     Dosage: UNK, DAILY
  2. PREMARIN [Suspect]
     Active Substance: ESTROGENS, CONJUGATED
     Indication: INTESTINAL PERFORATION
     Dosage: UNK (4 TIMES A WEEK)
  3. PREMARIN [Suspect]
     Active Substance: ESTROGENS, CONJUGATED
     Indication: CYSTITIS
     Dosage: UNK (3X4 WEEK PEA SIZE/PREMARIN VAGINAL CREAM 0.625)
     Route: 067
     Dates: start: 2003, end: 20191130

REACTIONS (9)
  - Off label use [Recovered/Resolved]
  - Vulvovaginal dryness [Not Recovered/Not Resolved]
  - Oropharyngeal discomfort [Unknown]
  - Product use in unapproved indication [Recovered/Resolved]
  - Vaginal haemorrhage [Recovered/Resolved]
  - Nasopharyngitis [Unknown]
  - Cough [Unknown]
  - Illness [Unknown]
  - Infection [Recovered/Resolved]
